FAERS Safety Report 4881404-X (Version None)
Quarter: 2005Q4

REPORT INFORMATION
  Report Type: 
  Country: None (occurrence: None)
  Receive Date: 20051201
  Receipt Date: 20050729
  Transmission Date: 20060501
  Serious: No
  Sender: FDA-Public Use
  Company Number: 2005PV000688

PATIENT
  Sex: Male
  Weight: 84.369 kg

DRUGS (11)
  1. BYETTA [Suspect]
     Indication: DIABETES MELLITUS NON-INSULIN-DEPENDENT
     Dosage: 5 MCG; BID; SC
     Route: 058
     Dates: start: 20050724
  2. NOVOLIN N [Concomitant]
  3. HUMALOG [Concomitant]
  4. ACTOS [Concomitant]
  5. SIMVASTATIN [Concomitant]
  6. TERAZOSIN [Concomitant]
  7. PLAVIX [Concomitant]
  8. GABAPENTIN [Concomitant]
  9. CANDASARTAN [Concomitant]
  10. ASPIRIN [Concomitant]
  11. HUMALOG [Concomitant]

REACTIONS (4)
  - BLOOD GLUCOSE INCREASED [None]
  - DECREASED APPETITE [None]
  - INJECTION SITE PAIN [None]
  - WEIGHT DECREASED [None]
